FAERS Safety Report 8141318-9 (Version None)
Quarter: 2012Q1

REPORT INFORMATION
  Report Type: 
  Country: None (occurrence: None)
  Receive Date: 20120103
  Receipt Date: 20111003
  Transmission Date: 20120608
  Serious: Yes (Other)
  Sender: FDA-Public Use
  Company Number: AE-2011-001144

PATIENT
  Sex: Female

DRUGS (10)
  1. RIBAVIRIN [Concomitant]
  2. HYDROCORTISONE [Concomitant]
  3. PEGASYS [Concomitant]
  4. BENADRYL [Concomitant]
  5. ZOLOFT [Concomitant]
  6. MECLIZINE [Concomitant]
  7. INCIVEK [Suspect]
     Dosage: ORAL
     Route: 048
     Dates: start: 20110101
  8. IRON [Concomitant]
  9. ACIPHEX [Concomitant]
  10. ZOFRAN [Concomitant]

REACTIONS (4)
  - URTICARIA [None]
  - ANAEMIA [None]
  - RASH [None]
  - ANXIETY [None]
